FAERS Safety Report 20842073 (Version 1)
Quarter: 2022Q2

REPORT INFORMATION
  Report Type: Spontaneous
  Country: US (occurrence: US)
  Receive Date: 20220518
  Receipt Date: 20220518
  Transmission Date: 20220721
  Serious: No
  Sender: FDA-Public Use
  Company Number: US-BION-009876

PATIENT
  Sex: Female

DRUGS (1)
  1. MOTRIN IB [Suspect]
     Active Substance: IBUPROFEN
     Indication: Pain
     Dosage: STRENGTH: 200 MG?1 TABLET, THRICE A DAY
     Route: 048
     Dates: start: 20210519, end: 20210607

REACTIONS (1)
  - Drug ineffective [Not Recovered/Not Resolved]
